FAERS Safety Report 21954060 (Version 1)
Quarter: 2023Q1

REPORT INFORMATION
  Report Type: Report from Study
  Country: US (occurrence: US)
  Receive Date: 20230204
  Receipt Date: 20230204
  Transmission Date: 20230417
  Serious: No
  Sender: FDA-Public Use
  Company Number: US-ACORDA-ACO_174273_2022

PATIENT
  Sex: Male
  Weight: 74 kg

DRUGS (8)
  1. AMPYRA [Suspect]
     Active Substance: DALFAMPRIDINE
     Indication: Multiple sclerosis
     Dosage: 10 MILLIGRAM, Q 12 HRS (1 TABLET EVERY 12 HOURS)
     Route: 048
  2. HYDROCHLOROTHIAZIDE [Concomitant]
     Active Substance: HYDROCHLOROTHIAZIDE
     Indication: Product used for unknown indication
     Dosage: 12.5 MILLIGRAM
     Route: 065
  3. AMLODIPINE BESYLATE [Concomitant]
     Active Substance: AMLODIPINE BESYLATE
     Indication: Product used for unknown indication
     Dosage: 10 MILLIGRAM
     Route: 065
  4. OTHER THERAPEUTIC PRODUCTS (Janssen Covid-19 vaccine (EUA)) [Concomitant]
     Indication: Product used for unknown indication
     Dosage: UNK
     Route: 065
  5. KESIMPTA [Concomitant]
     Active Substance: OFATUMUMAB
     Indication: Product used for unknown indication
     Dosage: UNK
     Route: 065
  6. FISH OIL [Concomitant]
     Active Substance: FISH OIL
     Indication: Product used for unknown indication
     Dosage: 100-160 MILLIGRAM
     Route: 065
  7. OTHER THERAPEUTIC PRODUCTS (Multivitamin 50 plus) [Concomitant]
     Indication: Product used for unknown indication
     Dosage: UNK
     Route: 065
  8. CARVEDILOL [Concomitant]
     Active Substance: CARVEDILOL
     Indication: Product used for unknown indication
     Dosage: 12.5 MILLIGRAM
     Route: 065

REACTIONS (4)
  - Lower respiratory tract infection [Unknown]
  - Headache [Unknown]
  - Multiple sclerosis relapse [Unknown]
  - Inappropriate schedule of product administration [Unknown]
